FAERS Safety Report 16645101 (Version 2)
Quarter: 2019Q3

REPORT INFORMATION
  Report Type: Report from Study
  Country: US (occurrence: HU)
  Receive Date: 20190729
  Receipt Date: 20190801
  Transmission Date: 20191004
  Serious: Yes (Other)
  Sender: FDA-Public Use
  Company Number: US-SUNOVION-2019SUN003133

PATIENT

DRUGS (2)
  1. INDACATEROL AND GLYCOPYRROLATE [Suspect]
     Active Substance: GLYCOPYRROLATE\INDACATEROL MALEATE
     Indication: CHRONIC OBSTRUCTIVE PULMONARY DISEASE
     Dosage: UNK, QD
     Route: 065
     Dates: start: 2019
  2. INSULIN [Concomitant]
     Active Substance: INSULIN NOS
     Indication: DIABETES MELLITUS
     Dosage: 3 DF, QD
     Route: 065

REACTIONS (4)
  - Infarction [Unknown]
  - Chronic obstructive pulmonary disease [Not Recovered/Not Resolved]
  - Malaise [Not Recovered/Not Resolved]
  - Hypoacusis [Not Recovered/Not Resolved]
